FAERS Safety Report 5589094-8 (Version None)
Quarter: 2007Q4

REPORT INFORMATION
  Report Type: 
  Country: None (occurrence: None)
  Receive Date: 20071212
  Receipt Date: 20070928
  Transmission Date: 20080405
  Serious: Yes (Other)
  Sender: FDA-Public Use
  Company Number: USA-2005-0020746

PATIENT
  Age: 44 Year
  Sex: Male

DRUGS (2)
  1. OXYCONTIN [Suspect]
     Indication: BACK PAIN
     Dosage: SEE TEXT
     Dates: start: 20030101, end: 20070704
  2. OXYCODONE HCL [Concomitant]

REACTIONS (7)
  - COLD SWEAT [None]
  - CONFUSIONAL STATE [None]
  - DRUG DEPENDENCE [None]
  - DRUG EFFECT DECREASED [None]
  - DRUG TOLERANCE INCREASED [None]
  - INTENTIONAL DRUG MISUSE [None]
  - TOOTH DISORDER [None]
